FAERS Safety Report 16852943 (Version 1)
Quarter: 2019Q3

REPORT INFORMATION
  Report Type: Spontaneous
  Country: US (occurrence: US)
  Receive Date: 20190925
  Receipt Date: 20190925
  Transmission Date: 20191005
  Serious: No
  Sender: FDA-Public Use
  Company Number: US-ARRAY-2019-06367

PATIENT

DRUGS (3)
  1. VECTIBIX [Concomitant]
     Active Substance: PANITUMUMAB
     Indication: COLORECTAL CANCER
  2. MEKTOVI [Suspect]
     Active Substance: BINIMETINIB
     Indication: COLORECTAL CANCER
     Dosage: UNK
  3. BRAFTOVI [Suspect]
     Active Substance: ENCORAFENIB
     Indication: COLORECTAL CANCER
     Dosage: UNK

REACTIONS (2)
  - Stomatitis [Unknown]
  - Product use in unapproved indication [Unknown]
